FAERS Safety Report 4558917-3 (Version None)
Quarter: 2005Q1

REPORT INFORMATION
  Report Type: 
  Country: None (occurrence: None)
  Receive Date: 20050121
  Receipt Date: 20041025
  Transmission Date: 20050727
  Serious: Yes (Hospitalization, Other)
  Sender: FDA-Public Use
  Company Number: US-MERCK-0410USA03808

PATIENT
  Age: 75 Year
  Sex: Female
  Weight: 90 kg

DRUGS (5)
  1. VIOXX [Suspect]
     Indication: PAIN MANAGEMENT
     Route: 048
     Dates: start: 20030501, end: 20040702
  2. VIOXX [Suspect]
     Route: 048
     Dates: start: 20020101
  3. VIOXX [Suspect]
     Indication: INTERVERTEBRAL DISC DISORDER
     Route: 048
     Dates: start: 20030501, end: 20040702
  4. VIOXX [Suspect]
     Route: 048
     Dates: start: 20020101
  5. [COMPOSITION UNSPECIFIED] [Concomitant]
     Route: 065

REACTIONS (2)
  - RENAL ARTERY STENOSIS [None]
  - RENAL FAILURE [None]
